FAERS Safety Report 7041217-X (Version None)
Quarter: 2010Q4

REPORT INFORMATION
  Report Type: 
  Country: None (occurrence: None)
  Receive Date: 20101013
  Receipt Date: 20101011
  Transmission Date: 20110411
  Serious: Yes (Life-Threatening, Hospitalization)
  Sender: FDA-Public Use
  Company Number: FR-BRISTOL-MYERS SQUIBB COMPANY-15328982

PATIENT
  Age: 68 Year
  Sex: Male

DRUGS (7)
  1. APROVEL TABS 300 MG [Suspect]
     Route: 048
     Dates: end: 20100821
  2. MODAMIDE [Suspect]
     Route: 048
     Dates: end: 20100821
  3. PREVISCAN [Concomitant]
  4. FLECAINIDE ACETATE [Concomitant]
  5. NIDREL [Concomitant]
  6. TARCEVA [Concomitant]
  7. TAHOR [Concomitant]

REACTIONS (4)
  - FALL [None]
  - HEAD INJURY [None]
  - HYPERKALAEMIA [None]
  - SYNCOPE [None]
